FAERS Safety Report 6651445-0 (Version None)
Quarter: 2010Q1

REPORT INFORMATION
  Report Type: 
  Country: None (occurrence: None)
  Receive Date: 20100322
  Receipt Date: 20100305
  Transmission Date: 20100710
  Serious: No
  Sender: FDA-Public Use
  Company Number: 2009003800

PATIENT
  Age: 58 Year
  Sex: Male

DRUGS (1)
  1. TARCEVA [Suspect]
     Indication: PANCREATIC CARCINOMA
     Dosage: 9100 MG, QD), ORAL
     Route: 048

REACTIONS (5)
  - AORTIC ANEURYSM [None]
  - BONE LESION [None]
  - INTERVERTEBRAL DISC SPACE NARROWING [None]
  - LEUKOPENIA [None]
  - OSTEOLYSIS [None]
